FAERS Safety Report 8823324 (Version 2)
Quarter: 2012Q4

REPORT INFORMATION
  Report Type: 
  Country: CZ (occurrence: CZ)
  Receive Date: 20121003
  Receipt Date: 20121029
  Transmission Date: 20130627
  Serious: Yes (Death)
  Sender: FDA-Public Use
  Company Number: CZ-BAYER-2012-100542

PATIENT
  Age: 48 Year
  Sex: Male

DRUGS (4)
  1. NEXAVAR [Suspect]
     Indication: HEPATIC NEOPLASM MALIGNANT NON-RESECTABLE
     Dosage: 400 mg, BID
     Route: 048
     Dates: start: 20090102, end: 20100815
  2. NEXAVAR [Suspect]
     Indication: HEPATIC NEOPLASM MALIGNANT NON-RESECTABLE
     Dosage: 400 mg, QD
     Route: 048
     Dates: start: 201009, end: 20101123
  3. NEXAVAR [Suspect]
     Indication: HEPATIC NEOPLASM MALIGNANT NON-RESECTABLE
     Dosage: 400 mg, QD
     Route: 048
     Dates: start: 201012, end: 20110627
  4. ANGIOTENSIN II ANTAGONISTS [Concomitant]

REACTIONS (3)
  - Hepatocellular carcinoma [Fatal]
  - Thrombocytopenia [None]
  - Hair colour changes [None]
